FAERS Safety Report 5865968-5 (Version None)
Quarter: 2008Q3

REPORT INFORMATION
  Report Type: 
  Country: None (occurrence: None)
  Receive Date: 20080829
  Receipt Date: 20080822
  Transmission Date: 20090109
  Serious: Yes (Other)
  Sender: FDA-Public Use
  Company Number: US-PFIZER INC-2008053414

PATIENT
  Sex: Female
  Weight: 81.6 kg

DRUGS (7)
  1. DETROL LA [Suspect]
     Indication: NOCTURIA
     Dates: start: 20071101, end: 20080522
  2. DETROL LA [Suspect]
     Indication: HYPERTONIC BLADDER
  3. LEVOTHROID [Concomitant]
  4. ACETYLSALICYLIC ACID SRT [Concomitant]
  5. MULTI-VITAMINS [Concomitant]
  6. ASPIRIN [Concomitant]
  7. VITAMIN TAB [Concomitant]

REACTIONS (2)
  - DEHYDRATION [None]
  - GAIT DISTURBANCE [None]
